FAERS Safety Report 19687674 (Version 1)
Quarter: 2021Q3

REPORT INFORMATION
  Report Type: Spontaneous
  Country: CN (occurrence: CN)
  Receive Date: 20210811
  Receipt Date: 20210811
  Transmission Date: 20211014
  Serious: Yes (Other)
  Sender: FDA-Public Use
  Company Number: CN-AMERICAN REGENT INC-2021002092

PATIENT
  Age: 92 Year
  Sex: Female
  Weight: 68 kg

DRUGS (3)
  1. SODIUM CHLORIDE. [Concomitant]
     Active Substance: SODIUM CHLORIDE
     Indication: ANAEMIA
     Dosage: 200 ML, 1 IN 1 D
     Dates: start: 20210629, end: 20210629
  2. VENOFER [Suspect]
     Active Substance: IRON SUCROSE
     Indication: DIARRHOEA
  3. VENOFER [Suspect]
     Active Substance: IRON SUCROSE
     Indication: IRON DEFICIENCY ANAEMIA
     Dosage: 100 MG, 1 IN 1 D
     Dates: start: 20210714, end: 20210714

REACTIONS (2)
  - Chills [Recovered/Resolved]
  - Pyrexia [Recovered/Resolved]

NARRATIVE: CASE EVENT DATE: 20210714
